FAERS Safety Report 9796493 (Version 1)
Quarter: 2014Q1

REPORT INFORMATION
  Report Type: Spontaneous
  Country: FR (occurrence: FR)
  Receive Date: 20140103
  Receipt Date: 20140103
  Transmission Date: 20141002
  Serious: Yes (Congenital Anomaly)
  Sender: FDA-Public Use
  Company Number: FR-GLAXOSMITHKLINE-B0955741B

PATIENT
  Sex: 0

DRUGS (2)
  1. LAMICTAL [Suspect]
     Indication: EPILEPSY
     Dosage: 1UNIT FOUR TIMES PER DAY
     Route: 064
     Dates: start: 201307
  2. SPECIAFOLDINE [Concomitant]
     Indication: PRODUCT USED FOR UNKNOWN INDICATION
     Dosage: 5MG PER DAY
     Route: 064
     Dates: start: 201307

REACTIONS (2)
  - Anencephaly [Unknown]
  - Foetal exposure during pregnancy [Unknown]
